FAERS Safety Report 6780944-6 (Version None)
Quarter: 2010Q2

REPORT INFORMATION
  Report Type: 
  Country: None (occurrence: None)
  Receive Date: 20100621
  Receipt Date: 20100607
  Transmission Date: 20101027
  Serious: No
  Sender: FDA-Public Use
  Company Number: US-JNJFOC-20100602945

PATIENT
  Sex: Female
  Weight: 64.41 kg

DRUGS (2)
  1. INVEGA SUSTENNA [Suspect]
     Indication: BIPOLAR DISORDER
     Route: 030
  2. KLONOPIN [Concomitant]
     Indication: NERVOUSNESS

REACTIONS (3)
  - AMENORRHOEA [None]
  - SEDATION [None]
  - WEIGHT INCREASED [None]
